FAERS Safety Report 4968636-7 (Version None)
Quarter: 2006Q2

REPORT INFORMATION
  Report Type: 
  Country: None (occurrence: None)
  Receive Date: 20060405
  Receipt Date: 20060322
  Transmission Date: 20061013
  Serious: Yes (Hospitalization)
  Sender: FDA-Public Use
  Company Number: 2006040881

PATIENT
  Age: 64 Year
  Sex: Male

DRUGS (4)
  1. SUTENT [Suspect]
     Indication: METASTATIC RENAL CELL CARCINOMA
     Dosage: 50 MG (50 MG, 1 IN 1 D), ORAL
     Route: 048
     Dates: start: 20060310, end: 20060320
  2. DECADRON [Concomitant]
  3. RANITIDINE [Concomitant]
  4. TYLENOL [Concomitant]

REACTIONS (4)
  - CONFUSIONAL STATE [None]
  - JAUNDICE [None]
  - METASTASES TO CENTRAL NERVOUS SYSTEM [None]
  - RECURRENT CANCER [None]
